FAERS Safety Report 21579390 (Version 5)
Quarter: 2023Q4

REPORT INFORMATION
  Report Type: Report from Study
  Country: JP (occurrence: JP)
  Receive Date: 20221110
  Receipt Date: 20231025
  Transmission Date: 20240110
  Serious: Yes (Hospitalization)
  Sender: FDA-Public Use
  Company Number: JP-JNJFOC-20220349893

PATIENT
  Age: 83 Year
  Sex: Male
  Weight: 55 kg

DRUGS (14)
  1. APALUTAMIDE [Suspect]
     Active Substance: APALUTAMIDE
     Indication: Prostate cancer metastatic
     Route: 048
     Dates: start: 20210223, end: 20210510
  2. APALUTAMIDE [Suspect]
     Active Substance: APALUTAMIDE
     Route: 048
     Dates: start: 20210705
  3. BETAMETHASONE DIPROPIONATE [Concomitant]
     Active Substance: BETAMETHASONE DIPROPIONATE
     Indication: Drug eruption
     Dosage: Q.S.
     Route: 061
     Dates: start: 20210510, end: 20211205
  4. GLYCOSAMINOGLYCANS [Concomitant]
     Active Substance: GLYCOSAMINOGLYCANS
     Indication: Drug eruption
     Dosage: Q.S.
     Route: 061
     Dates: start: 20210510, end: 20210801
  5. GLYCOSAMINOGLYCANS [Concomitant]
     Active Substance: GLYCOSAMINOGLYCANS
     Indication: Drug eruption
     Dosage: Q.S.
     Route: 061
     Dates: start: 20210802
  6. ALLELOCK [Concomitant]
     Active Substance: OLOPATADINE HYDROCHLORIDE
     Indication: Drug eruption
     Route: 048
     Dates: start: 20210512
  7. MYSER [DIFLUPREDNATE] [Concomitant]
     Indication: Drug eruption
     Dosage: Q.S.
     Route: 061
     Dates: start: 20210512, end: 20210801
  8. EURAX [Concomitant]
     Active Substance: CROTAMITON
     Indication: Drug eruption
     Dosage: Q.S., SEVERAL TIMES A DAY
     Route: 061
     Dates: start: 20210512
  9. MENTHOL [Concomitant]
     Active Substance: MENTHOL
     Indication: Drug eruption
     Dosage: Q.S., SEVERAL TIMES A DAY
     Route: 065
     Dates: start: 20210512
  10. BETAMETHASONE DIPROPIONATE [Concomitant]
     Active Substance: BETAMETHASONE DIPROPIONATE
     Indication: Drug eruption
     Dosage: Q.S.
     Route: 061
     Dates: start: 20210802
  11. DEXAMETHASONE [Concomitant]
     Active Substance: DEXAMETHASONE
     Indication: Drug eruption
     Dosage: Q.S.
     Route: 061
     Dates: start: 20210519, end: 20210927
  12. LOCOID [Concomitant]
     Active Substance: HYDROCORTISONE BUTYRATE
     Indication: Drug eruption
     Dosage: Q.S.
     Route: 061
     Dates: start: 20210802, end: 20210927
  13. GUAIAZULENE [Concomitant]
     Active Substance: GUAIAZULENE
     Indication: Drug eruption
     Dosage: Q.S.
     Route: 065
     Dates: start: 20221205
  14. CLOBETASONE BUTYRATE [Concomitant]
     Active Substance: CLOBETASONE BUTYRATE
     Indication: Drug eruption
     Dosage: Q.S.
     Route: 065
     Dates: start: 20220801

REACTIONS (6)
  - Cellulitis [Recovering/Resolving]
  - Enterocolitis viral [Recovered/Resolved]
  - Type 1 diabetes mellitus [Recovering/Resolving]
  - Urinary tract infection [Recovered/Resolved]
  - Hospitalisation [Unknown]
  - Drug eruption [Not Recovered/Not Resolved]

NARRATIVE: CASE EVENT DATE: 20210409
